FAERS Safety Report 10784777 (Version 1)
Quarter: 2015Q1

REPORT INFORMATION
  Report Type: Spontaneous
  Country: US (occurrence: US)
  Receive Date: 20150211
  Receipt Date: 20150211
  Transmission Date: 20150721
  Serious: No
  Sender: FDA-Public Use
  Company Number: US-GLAXOSMITHKLINE-A1086142A

PATIENT

DRUGS (15)
  1. PREDNISONE. [Suspect]
     Active Substance: PREDNISONE
     Indication: MUSCULOSKELETAL DISCOMFORT
  2. IRON [Concomitant]
     Active Substance: IRON
  3. ATORVASTATIN [Concomitant]
     Active Substance: ATORVASTATIN
  4. SPIRONOLACTONE. [Concomitant]
     Active Substance: SPIRONOLACTONE
  5. MIRTAZAPINE. [Concomitant]
     Active Substance: MIRTAZAPINE
  6. BENICAR [Concomitant]
     Active Substance: OLMESARTAN MEDOXOMIL
  7. MAGNESIUM [Concomitant]
     Active Substance: MAGNESIUM
  8. PREVACID [Concomitant]
     Active Substance: LANSOPRAZOLE
  9. PREDNISONE. [Suspect]
     Active Substance: PREDNISONE
     Indication: BACK DISORDER
     Route: 065
     Dates: start: 2014, end: 201405
  10. VITAMIN D [Concomitant]
     Active Substance: CHOLECALCIFEROL
  11. LAMICTAL [Suspect]
     Active Substance: LAMOTRIGINE
     Indication: PRODUCT USED FOR UNKNOWN INDICATION
     Dosage: 100 MG UNIT DOSE TWICE PER DAY, 200 MG TOTAL DAILY DOSE
     Route: 065
  12. VIIBRYD [Suspect]
     Active Substance: VILAZODONE HYDROCHLORIDE
     Indication: DEPRESSION
     Dosage: 10 MG PER DAY TITRATED TO 40 MG PER DAY
     Route: 048
     Dates: start: 201401
  13. METOPROLOL [Concomitant]
     Active Substance: METOPROLOL
  14. LEVOTHYROXINE [Concomitant]
     Active Substance: LEVOTHYROXINE
  15. ALPRAZOLAM. [Suspect]
     Active Substance: ALPRAZOLAM
     Indication: ANXIETY
     Dosage: 1 MG UNIT DOSE TWICE PER DAY, 2 MG TOTAL DAILY DOSE
     Route: 065

REACTIONS (1)
  - Weight increased [Not Recovered/Not Resolved]
